FAERS Safety Report 7735767-8 (Version None)
Quarter: 2011Q3

REPORT INFORMATION
  Report Type: 
  Country: None (occurrence: None)
  Receive Date: 20110908
  Receipt Date: 20110829
  Transmission Date: 20111222
  Serious: Yes (Hospitalization)
  Sender: FDA-Public Use
  Company Number: US-BIOGENIDEC-2011BI033622

PATIENT
  Age: 54 Year
  Sex: Female

DRUGS (2)
  1. AVONEX [Suspect]
     Route: 030
     Dates: start: 19990701, end: 20060101
  2. AVONEX [Suspect]
     Indication: MULTIPLE SCLEROSIS
     Route: 030
     Dates: start: 20060101

REACTIONS (11)
  - DYSPNOEA [None]
  - LIGAMENT SPRAIN [None]
  - VOMITING [None]
  - HEART RATE INCREASED [None]
  - MULTIPLE SCLEROSIS [None]
  - ANKLE FRACTURE [None]
  - BLOOD PRESSURE INCREASED [None]
  - DIARRHOEA [None]
  - CORONARY ARTERY DISEASE [None]
  - INFUSION SITE INFECTION [None]
  - ELECTROCARDIOGRAM CHANGE [None]
